FAERS Safety Report 9814999 (Version 1)
Quarter: 2014Q1

REPORT INFORMATION
  Report Type: Report from Study
  Country: US (occurrence: US)
  Receive Date: 20140114
  Receipt Date: 20140114
  Transmission Date: 20141002
  Serious: Yes (Other)
  Sender: FDA-Public Use
  Company Number: US-ROCHE-1331596

PATIENT
  Sex: Male
  Weight: 11.6 kg

DRUGS (1)
  1. NUTROPIN AQ [Suspect]
     Indication: NOONAN SYNDROME
     Route: 058

REACTIONS (3)
  - Cardiac murmur [Not Recovered/Not Resolved]
  - Injection site pain [Unknown]
  - Injection site bruising [Unknown]
